FAERS Safety Report 18523926 (Version 1)
Quarter: 2020Q4

REPORT INFORMATION
  Report Type: Spontaneous
  Country: CN (occurrence: CN)
  Receive Date: 20201119
  Receipt Date: 20201119
  Transmission Date: 20210114
  Serious: Yes (Other)
  Sender: FDA-Public Use
  Company Number: CN-ASTRAZENECA-2020SF51926

PATIENT
  Age: 17447 Day
  Sex: Male
  Weight: 57 kg

DRUGS (8)
  1. DEXAMETHASONE. [Suspect]
     Active Substance: DEXAMETHASONE
     Indication: METASTASES TO PLEURA
     Route: 048
     Dates: start: 20201023, end: 20201025
  2. PEMETREXED DISODIUM [Suspect]
     Active Substance: PEMETREXED DISODIUM
     Indication: LUNG NEOPLASM
     Route: 065
     Dates: start: 20201024, end: 20201024
  3. DEXAMETHASONE. [Suspect]
     Active Substance: DEXAMETHASONE
     Indication: LUNG NEOPLASM
     Route: 048
     Dates: start: 20201023, end: 20201025
  4. GEFITINIB. [Suspect]
     Active Substance: GEFITINIB
     Indication: METASTASES TO PLEURA
     Route: 048
     Dates: start: 20201022, end: 20201026
  5. NEDAPLATIN [Suspect]
     Active Substance: NEDAPLATIN
     Indication: LUNG NEOPLASM
     Route: 065
  6. NEDAPLATIN [Suspect]
     Active Substance: NEDAPLATIN
     Indication: METASTASES TO PLEURA
     Route: 065
  7. PEMETREXED DISODIUM [Suspect]
     Active Substance: PEMETREXED DISODIUM
     Indication: METASTASES TO PLEURA
     Route: 065
     Dates: start: 20201024, end: 20201024
  8. GEFITINIB. [Suspect]
     Active Substance: GEFITINIB
     Indication: LUNG NEOPLASM
     Route: 048
     Dates: start: 20201022, end: 20201026

REACTIONS (3)
  - Nausea [Recovered/Resolved]
  - Blood glucose fluctuation [Recovering/Resolving]
  - Hyperglycaemia [Recovering/Resolving]

NARRATIVE: CASE EVENT DATE: 20201026
